FAERS Safety Report 6099477-8 (Version None)
Quarter: 2009Q1

REPORT INFORMATION
  Report Type: 
  Country: None (occurrence: None)
  Receive Date: 20090303
  Receipt Date: 20090223
  Transmission Date: 20090719
  Serious: Yes (Hospitalization)
  Sender: FDA-Public Use
  Company Number: US-ELI_LILLY_AND_COMPANY-US200902007176

PATIENT
  Sex: Female
  Weight: 75.737 kg

DRUGS (9)
  1. BYETTA [Suspect]
     Indication: TYPE 2 DIABETES MELLITUS
     Dates: start: 20060101, end: 20070301
  2. ACTOS [Concomitant]
     Indication: TYPE 2 DIABETES MELLITUS
  3. ALTACE [Concomitant]
     Indication: DYSPEPSIA
  4. PRANDIN /USA/ [Concomitant]
     Indication: TYPE 2 DIABETES MELLITUS
  5. ATENOLOL [Concomitant]
  6. LIPITOR [Concomitant]
  7. SYNTHROID [Concomitant]
     Indication: THYROID DISORDER
  8. PREMARIN [Concomitant]
  9. METFORMIN HCL [Concomitant]

REACTIONS (2)
  - PAIN [None]
  - PANCREATIC DISORDER [None]
